FAERS Safety Report 20371209 (Version 2)
Quarter: 2022Q1

REPORT INFORMATION
  Report Type: Spontaneous
  Country: US (occurrence: None)
  Receive Date: 20220124
  Receipt Date: 20220217
  Transmission Date: 20220424
  Serious: Yes (Death)
  Sender: FDA-Public Use
  Company Number: US-ROCHE-3002394

PATIENT
  Sex: Female
  Weight: 54.480 kg

DRUGS (10)
  1. ACTEMRA [Suspect]
     Active Substance: TOCILIZUMAB
     Indication: Polymyalgia rheumatica
     Dosage: EVERY 14 DAYS
     Route: 058
     Dates: start: 20200927
  2. ACTEMRA [Suspect]
     Active Substance: TOCILIZUMAB
  3. ALBUTEROL [Concomitant]
     Active Substance: ALBUTEROL
  4. BREO ELLIPTA [Concomitant]
     Active Substance: FLUTICASONE FUROATE\VILANTEROL TRIFENATATE
  5. DULOXETINE [Concomitant]
     Active Substance: DULOXETINE
  6. GABAPENTIN [Concomitant]
     Active Substance: GABAPENTIN
  7. ATROVENT [Concomitant]
     Active Substance: IPRATROPIUM BROMIDE
  8. LISINOPRIL [Concomitant]
     Active Substance: LISINOPRIL
  9. METOPROLOL [Concomitant]
     Active Substance: METOPROLOL
  10. PANTOPRAZOLE [Concomitant]
     Active Substance: PANTOPRAZOLE

REACTIONS (3)
  - Off label use [Unknown]
  - Respiratory failure [Fatal]
  - COVID-19 pneumonia [Fatal]
